FAERS Safety Report 25835507 (Version 2)
Quarter: 2025Q4

REPORT INFORMATION
  Report Type: Spontaneous
  Country: AU (occurrence: AU)
  Receive Date: 20250923
  Receipt Date: 20251006
  Transmission Date: 20260117
  Serious: Yes (Other)
  Sender: MAYNE
  Company Number: AU-MAYNE PHARMA-2025MYN000585

PATIENT

DRUGS (1)
  1. BIJUVA [Suspect]
     Active Substance: ESTRADIOL\PROGESTERONE
     Indication: Menopause
     Dosage: 1 CAPSULE, QD AT NIGHT
     Route: 065
     Dates: start: 20240710, end: 202503

REACTIONS (4)
  - Postmenopausal haemorrhage [Recovered/Resolved]
  - Postmenopausal haemorrhage [Recovered/Resolved]
  - Endometrial hyperplasia [Recovered/Resolved]
  - Renal cell carcinoma [Unknown]

NARRATIVE: CASE EVENT DATE: 20241030
